FAERS Safety Report 22361777 (Version 2)
Quarter: 2023Q2

REPORT INFORMATION
  Report Type: Spontaneous
  Country: IN (occurrence: IN)
  Receive Date: 20230524
  Receipt Date: 20230525
  Transmission Date: 20230722
  Serious: Yes (Other)
  Sender: FDA-Public Use
  Company Number: IN-002147023-NVSC2023IN114203

PATIENT
  Age: 52 Year
  Sex: Male

DRUGS (4)
  1. ZOLEDRONIC ACID [Suspect]
     Active Substance: ZOLEDRONIC ACID
     Indication: Rheumatoid arthritis
     Dosage: UNK
     Route: 065
     Dates: start: 20211016, end: 20220427
  2. ZOLEDRONIC ACID [Suspect]
     Active Substance: ZOLEDRONIC ACID
     Indication: Plasma cell myeloma
  3. BORTEZOMIB [Suspect]
     Active Substance: BORTEZOMIB
     Indication: Rheumatoid arthritis
     Dosage: UNK
     Route: 065
     Dates: start: 20211016, end: 20220427
  4. BORTEZOMIB [Suspect]
     Active Substance: BORTEZOMIB
     Indication: Plasma cell myeloma

REACTIONS (21)
  - Leukopenia [Unknown]
  - Plasmacytoma [Unknown]
  - Metastasis [Unknown]
  - Rheumatoid arthritis [Unknown]
  - Plasma cell myeloma [Unknown]
  - Haemoglobin decreased [Unknown]
  - Mean cell volume increased [Unknown]
  - Mean cell haemoglobin increased [Unknown]
  - Mean cell haemoglobin concentration increased [Unknown]
  - Haematocrit decreased [Unknown]
  - Abdominal pain [Unknown]
  - Bone pain [Unknown]
  - Hepatic lesion [Unknown]
  - Bone lesion [Unknown]
  - Pulmonary mass [Unknown]
  - Pleural thickening [Unknown]
  - Liver disorder [Unknown]
  - Soft tissue mass [Unknown]
  - Hyperplasia [Unknown]
  - Reticulin increased [Unknown]
  - Product use in unapproved indication [Unknown]

NARRATIVE: CASE EVENT DATE: 20211016
